FAERS Safety Report 9120411 (Version 1)
Quarter: 2013Q1

REPORT INFORMATION
  Report Type: Spontaneous
  Country: DE (occurrence: DE)
  Receive Date: 20130226
  Receipt Date: 20130226
  Transmission Date: 20140127
  Serious: Yes (Other)
  Sender: FDA-Public Use
  Company Number: GXKR2013DE000941

PATIENT
  Sex: 0

DRUGS (3)
  1. DOXEPIN [Suspect]
     Dosage: MATERNAL DOSE: 100 [MG/D ]/ BEGIN OF THERAPY NOT KNOWN, AT LEAST DURING THE 3RD TRIMESTER
     Route: 064
  2. DOXEPIN [Suspect]
     Dosage: MATERNAL DOSE: HANDFUL TABLETS OF DOXEPIN FOR SUICIDE ATTEMPT IN 1ST TRIMAESTER
     Route: 064
  3. DIAZEPAM [Suspect]
     Dosage: MATERNAL DOSE: 5 [MG/EVERY 2D ]/ BEGIN OF THERAPY NOT KNOWN, AT LEAST DURING THE 3RD TRIMESTER
     Route: 064

REACTIONS (4)
  - Bradycardia neonatal [Recovered/Resolved]
  - Apnoea neonatal [Recovered/Resolved]
  - Hypotonia neonatal [Recovered/Resolved]
  - Foetal exposure during pregnancy [Unknown]
